FAERS Safety Report 9423445 (Version 1)
Quarter: 2013Q3

REPORT INFORMATION
  Report Type: Spontaneous
  Country: US (occurrence: US)
  Receive Date: 20130726
  Receipt Date: 20130726
  Transmission Date: 20140515
  Serious: No
  Sender: FDA-Public Use
  Company Number: US-GALDERMA-US12416104

PATIENT
  Age: 20 Year
  Sex: Female

DRUGS (6)
  1. DIFFERIN (ADAPALENE) GEL, 0.3% [Suspect]
     Indication: ACNE
     Dosage: 0.3%
     Route: 061
     Dates: start: 20121219
  2. ACANYA (BENZOYL PEROXIDE AND CLINDAMYCIN PHOSPHATE) [Suspect]
     Indication: ACNE
     Route: 061
     Dates: start: 20121220
  3. CITALOPRAM [Concomitant]
     Indication: ANXIETY
     Route: 048
     Dates: start: 2011
  4. ALPRAZOLAM [Concomitant]
     Indication: ANXIETY
     Route: 048
  5. L-THYROXINE [Concomitant]
     Indication: HYPOTHYROIDISM
     Route: 048
     Dates: start: 2010
  6. (ETHINYL ESTRADIOL, NORETHINDRONE AND FERROUS FUMARATE) [Concomitant]
     Route: 048

REACTIONS (3)
  - Dizziness [Not Recovered/Not Resolved]
  - Feeling abnormal [Not Recovered/Not Resolved]
  - Ear discomfort [Not Recovered/Not Resolved]
